FAERS Safety Report 21812107 (Version 1)
Quarter: 2023Q1

REPORT INFORMATION
  Report Type: Spontaneous
  Country: NL (occurrence: NL)
  Receive Date: 20230103
  Receipt Date: 20230103
  Transmission Date: 20230418
  Serious: Yes (Other)
  Sender: FDA-Public Use
  Company Number: NL-CELLTRION HEALTHCARE HUNGARY KFT-2022NL015457

PATIENT
  Age: 33 Year

DRUGS (9)
  1. AZATHIOPRINE [Suspect]
     Active Substance: AZATHIOPRINE
     Indication: Anal fistula
     Dosage: 2.0-2.5MG/KG TABLE ONCE A DAY
     Route: 065
  2. ADALIMUMAB [Suspect]
     Active Substance: ADALIMUMAB
     Indication: Anal fistula
     Dosage: 80 MG AFTER 2 WEEKS
     Route: 003
  3. ADALIMUMAB [Suspect]
     Active Substance: ADALIMUMAB
     Dosage: 40 MG EVERY 3 WEEKS.
     Route: 003
  4. ADALIMUMAB [Suspect]
     Active Substance: ADALIMUMAB
     Dosage: A LOADING DOSE OF 160 MG AT THE START OF TREATMENT
     Route: 003
  5. MERCAPTOPURINE [Suspect]
     Active Substance: MERCAPTOPURINE
     Indication: Anal fistula
     Dosage: 1.0-1.5MG/KG
     Route: 065
  6. INFLIXIMAB [Suspect]
     Active Substance: INFLIXIMAB
     Indication: Anal fistula
     Dosage: 5 MG/KG EVERY 8 WEEKS
     Route: 042
  7. INFLIXIMAB [Suspect]
     Active Substance: INFLIXIMAB
     Dosage: DOSE ESCALATION TO 5 MG/KG EVERY 6 WEEKS
     Route: 042
  8. INFLIXIMAB [Suspect]
     Active Substance: INFLIXIMAB
     Dosage: 5 MG/KG OF INFLIXIMAB WAS ADMINISTERED
     Route: 042
  9. MERCAPTOPURINE [Suspect]
     Active Substance: MERCAPTOPURINE
     Indication: Anal fistula
     Dosage: 1.0-1.5MG/KG
     Route: 065

REACTIONS (7)
  - Drug ineffective [Unknown]
  - Fatigue [Unknown]
  - Headache [Unknown]
  - Pruritus [Unknown]
  - Alopecia [Unknown]
  - Rash [Unknown]
  - Myalgia [Unknown]
